FAERS Safety Report 9657092 (Version 2)
Quarter: 2014Q1

REPORT INFORMATION
  Report Type: Report from Study
  Country: US (occurrence: US)
  Receive Date: 20131030
  Receipt Date: 20140122
  Transmission Date: 20141002
  Serious: Yes (Hospitalization, Other)
  Sender: FDA-Public Use
  Company Number: US-PURDUE-USA-2013-0107916

PATIENT
  Age: 50 Year
  Sex: Male

DRUGS (2)
  1. OXY CR TAB [Suspect]
     Indication: SPINAL CORD INJURY LUMBAR
     Dosage: 40 MG 1-2 TABLETS Q12 HR-MAX OF 3 PER DAY
     Route: 048
     Dates: start: 2010
  2. OXY CR TAB [Suspect]
     Dosage: 80 MG, Q12H
     Route: 048
     Dates: start: 20130924

REACTIONS (9)
  - Pneumonia [Recovered/Resolved]
  - Fall [Unknown]
  - Meniscus injury [Unknown]
  - Tooth injury [Unknown]
  - Anger [Unknown]
  - Pain [Unknown]
  - Migraine [Unknown]
  - Malaise [Unknown]
  - Dry mouth [Unknown]
